FAERS Safety Report 8822449 (Version 1)
Quarter: 2012Q4

REPORT INFORMATION
  Report Type: 
  Country: FR (occurrence: FR)
  Receive Date: 20121003
  Receipt Date: 20121003
  Transmission Date: 20130627
  Serious: Yes (Hospitalization)
  Sender: FDA-Public Use
  Company Number: FR-ELI_LILLY_AND_COMPANY-FR201209007297

PATIENT
  Age: 59 Year
  Sex: Male

DRUGS (8)
  1. ALIMTA [Suspect]
     Indication: BRONCHIAL CARCINOMA
     Dosage: 850 mg, UNK
     Route: 042
     Dates: start: 20120827, end: 20120827
  2. CARBOPLATINE [Concomitant]
     Indication: BRONCHIAL CARCINOMA
     Dosage: 390 mg, UNK
     Dates: start: 20120827, end: 20120827
  3. VITAMIN B12 [Concomitant]
     Indication: PREMEDICATION
     Dosage: UNK
     Dates: start: 20120821
  4. SPECIAFOLDINE [Concomitant]
     Indication: PREMEDICATION
     Dosage: UNK
     Dates: start: 20120821, end: 20120906
  5. GRANISETRON [Concomitant]
     Indication: PREMEDICATION
     Dosage: UNK
     Dates: start: 20120827
  6. METHYLPREDNISOLONE [Concomitant]
     Indication: PREMEDICATION
  7. CHLORPROMAZINE [Concomitant]
     Indication: PREMEDICATION
  8. CLORAZEPATE DIPOTASSIUM [Concomitant]
     Indication: PREMEDICATION

REACTIONS (1)
  - Leukocytoclastic vasculitis [Recovering/Resolving]
